FAERS Safety Report 9477062 (Version 1)
Quarter: 2013Q3

REPORT INFORMATION
  Report Type: Spontaneous
  Country: GB (occurrence: GB)
  Receive Date: 20130826
  Receipt Date: 20130826
  Transmission Date: 20140515
  Serious: Yes (Disabling)
  Sender: FDA-Public Use
  Company Number: GB-TEVA-427329ISR

PATIENT
  Age: 71 Year
  Sex: Female
  Weight: 66 kg

DRUGS (16)
  1. LANSOPRAZOLE [Suspect]
     Dates: start: 20130219
  2. LANSOPRAZOLE [Suspect]
     Dates: start: 20130206
  3. PROTON PUMP INHIBITORS [Suspect]
     Dates: start: 20130219
  4. OMEPRAZOLE [Concomitant]
     Dates: start: 20121221, end: 20121228
  5. OMEPRAZOLE [Concomitant]
     Dates: start: 20130213, end: 20130220
  6. METRONIDAZOLE [Concomitant]
     Dates: start: 20121221, end: 20121228
  7. METRONIDAZOLE [Concomitant]
     Dates: start: 20130213, end: 20130220
  8. CLARITHROMYCIN [Concomitant]
     Dates: start: 20121221, end: 20121228
  9. CLARITHROMYCIN [Concomitant]
     Dates: start: 20130214
  10. RANITIDINE [Concomitant]
     Dates: start: 20130108, end: 20130213
  11. RANITIDINE [Concomitant]
     Dates: start: 20130219
  12. GAVISCON [Concomitant]
     Dates: start: 20130108, end: 20130110
  13. FUSIDIC ACID [Concomitant]
     Dates: start: 20130108, end: 20130115
  14. AMOXICILLIN [Concomitant]
     Dates: start: 20130213, end: 20130220
  15. PANTOPRAZOLE [Concomitant]
     Dates: start: 20130214
  16. PROCHLORPERAZINE [Concomitant]
     Dates: start: 20130214

REACTIONS (2)
  - Swelling face [Recovered/Resolved]
  - Swollen tongue [Recovered/Resolved]
